FAERS Safety Report 8972959 (Version 1)
Quarter: 2012Q4

REPORT INFORMATION
  Report Type: 
  Country: US (occurrence: US)
  Receive Date: 20121218
  Receipt Date: 20121218
  Transmission Date: 20130627
  Serious: No
  Sender: FDA-Public Use
  Company Number: US-BRISTOL-MYERS SQUIBB COMPANY-16457608

PATIENT
  Age: 40 Year
  Sex: Female
  Weight: 94 kg

DRUGS (2)
  1. ABILIFY TABS 30 MG [Suspect]
     Indication: MOOD SWINGS
  2. ABILIFY TABS 30 MG [Suspect]
     Indication: ANXIETY

REACTIONS (3)
  - Vision blurred [Unknown]
  - Weight increased [Unknown]
  - Amnesia [Unknown]
